FAERS Safety Report 18728358 (Version 3)
Quarter: 2021Q1

REPORT INFORMATION
  Report Type: Report from Study
  Country: None (occurrence: NL)
  Receive Date: 20210111
  Receipt Date: 20210205
  Transmission Date: 20210419
  Serious: Yes (Hospitalization)
  Sender: FDA-Public Use
  Company Number: NL-ABBVIE-20K-114-3305681-00

PATIENT
  Sex: Male
  Weight: 70 kg

DRUGS (16)
  1. DUODOPA [Suspect]
     Active Substance: CARBIDOPA\LEVODOPA
     Dosage: MD: 10.0 ML CD: 3.0 ML/H ED: 3.0 ML
     Route: 050
     Dates: start: 2020
  2. DUODOPA [Suspect]
     Active Substance: CARBIDOPA\LEVODOPA
     Dosage: CD: 2.7 ML/H
     Route: 050
  3. DUODOPA [Suspect]
     Active Substance: CARBIDOPA\LEVODOPA
     Dosage: MD: 10.0ML, CD:3.0ML/H, ED: 3.0ML
     Route: 050
  4. DUODOPA [Suspect]
     Active Substance: CARBIDOPA\LEVODOPA
     Dosage: STRENGTH: 20 MG/ML 5 MG/ML
     Route: 050
  5. PAROXETINE. [Concomitant]
     Active Substance: PAROXETINE
     Indication: PROPHYLAXIS
     Route: 048
     Dates: start: 20010201
  6. MADOPAR DISPERSIBL [Concomitant]
     Active Substance: BENSERAZIDE HYDROCHLORIDE\LEVODOPA
     Indication: PARKINSON^S DISEASE
     Dosage: 5 TIMES A DAY 1.5 TABLET AND 1 TIME A DAY 1 TABLET
     Route: 048
     Dates: start: 20120201
  7. OXAZEPAM. [Concomitant]
     Active Substance: OXAZEPAM
     Indication: RELAXATION THERAPY
     Dosage: MAXIMAL 2 TABLETS
     Route: 048
     Dates: start: 20040201
  8. PAROXETINE. [Concomitant]
     Active Substance: PAROXETINE
     Route: 048
     Dates: start: 20020201
  9. ROPINIROLE. [Concomitant]
     Active Substance: ROPINIROLE
     Indication: PARKINSON^S DISEASE
     Route: 048
     Dates: start: 20030203
  10. ROPINIROLE. [Concomitant]
     Active Substance: ROPINIROLE
     Route: 048
     Dates: start: 20150202
  11. LEVODOPA/CARBIDOPA PCH RETARD [Concomitant]
     Indication: PARKINSON^S DISEASE
     Route: 048
     Dates: start: 20150202
  12. MACROGOL [Concomitant]
     Active Substance: POLYETHYLENE GLYCOLS
     Indication: ABNORMAL FAECES
     Dosage: 2 SACHETS PER DAY
  13. MACROGOL [Concomitant]
     Active Substance: POLYETHYLENE GLYCOLS
     Dosage: 3 SACHETS
  14. LEVODOPA/CARBIDOPA [Concomitant]
     Active Substance: CARBIDOPA\LEVODOPA
     Indication: PARKINSON^S DISEASE
     Route: 048
     Dates: start: 20040202
  15. DUODOPA [Suspect]
     Active Substance: CARBIDOPA\LEVODOPA
     Indication: PARKINSON^S DISEASE
     Dosage: MD: 10 CD: 2.8 ED: 3
     Route: 050
     Dates: start: 20200217, end: 2020
  16. MADOPAR DISPERSIBL [Concomitant]
     Active Substance: BENSERAZIDE HYDROCHLORIDE\LEVODOPA
     Route: 048
     Dates: start: 20150216

REACTIONS (42)
  - Musculoskeletal stiffness [Not Recovered/Not Resolved]
  - Bowel movement irregularity [Recovered/Resolved]
  - Therapeutic product effect variable [Not Recovered/Not Resolved]
  - Weight decreased [Recovering/Resolving]
  - Impaired quality of life [Unknown]
  - Gait disturbance [Not Recovered/Not Resolved]
  - Pain [Recovering/Resolving]
  - Restlessness [Not Recovered/Not Resolved]
  - Constipation [Not Recovered/Not Resolved]
  - Dystonia [Unknown]
  - Fatigue [Not Recovered/Not Resolved]
  - Panic attack [Not Recovered/Not Resolved]
  - Drug ineffective [Not Recovered/Not Resolved]
  - Mental disorder [Not Recovered/Not Resolved]
  - Off label use [Unknown]
  - Respiratory disorder [Not Recovered/Not Resolved]
  - Hallucination, visual [Recovered/Resolved]
  - Mental disorder [Unknown]
  - Faeces soft [Not Recovered/Not Resolved]
  - Weight increased [Recovered/Resolved]
  - Device occlusion [Unknown]
  - Dizziness [Recovering/Resolving]
  - Loss of personal independence in daily activities [Unknown]
  - Fear [Not Recovered/Not Resolved]
  - Sleep disorder [Recovering/Resolving]
  - Muscle rigidity [Not Recovered/Not Resolved]
  - Infrequent bowel movements [Not Recovered/Not Resolved]
  - Extra dose administered [Unknown]
  - Cognitive disorder [Not Recovered/Not Resolved]
  - Diaphragmalgia [Recovering/Resolving]
  - Personal relationship issue [Not Recovered/Not Resolved]
  - Dyspnoea [Not Recovered/Not Resolved]
  - Freezing phenomenon [Recovering/Resolving]
  - Fibroma [Not Recovered/Not Resolved]
  - Stress [Not Recovered/Not Resolved]
  - Dystonia [Not Recovered/Not Resolved]
  - Unevaluable event [Not Recovered/Not Resolved]
  - Bradykinesia [Not Recovered/Not Resolved]
  - On and off phenomenon [Not Recovered/Not Resolved]
  - Dyskinesia [Recovering/Resolving]
  - Pain [Not Recovered/Not Resolved]
  - Therapeutic product effect variable [Unknown]

NARRATIVE: CASE EVENT DATE: 2020
